FAERS Safety Report 9336831 (Version 2)
Quarter: 2013Q2

REPORT INFORMATION
  Report Type: Spontaneous
  Country: FR (occurrence: FR)
  Receive Date: 20130607
  Receipt Date: 20130618
  Transmission Date: 20140414
  Serious: Yes (Hospitalization)
  Sender: FDA-Public Use
  Company Number: FR-PFIZER INC-2013168217

PATIENT
  Sex: 0

DRUGS (2)
  1. GENOTONORM [Suspect]
     Dosage: 12MG PEN
     Dates: start: 201103
  2. GENOTONORM [Suspect]
     Dosage: 12MG PEN
     Dates: start: 20130603

REACTIONS (1)
  - Musculoskeletal stiffness [Recovered/Resolved]
